FAERS Safety Report 8121271-4 (Version None)
Quarter: 2012Q1

REPORT INFORMATION
  Report Type: 
  Country: None (occurrence: None)
  Receive Date: 20120203
  Receipt Date: 20120117
  Transmission Date: 20120608
  Serious: Yes (Hospitalization)
  Sender: FDA-Public Use
  Company Number: 2012-0219

PATIENT
  Age: 66 Year
  Sex: Male

DRUGS (8)
  1. ASCAL CARDIO (CARBASALATE CALCIUM) [Concomitant]
  2. SOMATULINE DEPOT [Suspect]
  3. SOMATULINE DEPOT [Suspect]
  4. TOLBUTAMIDE [Concomitant]
  5. SOMATULINE DEPOT [Suspect]
     Indication: POST PROCEDURAL DIARRHOEA
     Dosage: 120MG (120MG, 1 IN 128 D), INTRAMUSCULAR
     Route: 030
     Dates: start: 20111020
  6. PANZYTRAT (PANCREATIN) [Concomitant]
  7. METOPROLOL SUCC (METOPROLOL SUCCINATE) [Concomitant]
  8. LISINOPRIL [Concomitant]

REACTIONS (2)
  - PULMONARY OEDEMA [None]
  - METASTASES TO LUNG [None]
